FAERS Safety Report 5553582-0 (Version None)
Quarter: 2007Q4

REPORT INFORMATION
  Report Type: 
  Country: None (occurrence: None)
  Receive Date: 20071213
  Receipt Date: 20071204
  Transmission Date: 20080405
  Serious: Yes (Hospitalization)
  Sender: FDA-Public Use
  Company Number: US-ABBOTT-07P-163-0427309-00

PATIENT
  Age: 47 Year
  Sex: Male

DRUGS (2)
  1. RITONAVIR SOFT GELATIN CAPSULES [Suspect]
     Indication: HIV INFECTION
  2. APTIVUS [Suspect]
     Indication: HIV INFECTION

REACTIONS (2)
  - DRUG ADMINISTRATION ERROR [None]
  - STAPHYLOCOCCAL BACTERAEMIA [None]
